FAERS Safety Report 9242474 (Version 1)
Quarter: 2013Q2

REPORT INFORMATION
  Report Type: Spontaneous
  Country: GB (occurrence: GB)
  Receive Date: 20130419
  Receipt Date: 20130419
  Transmission Date: 20140414
  Serious: Yes (Disabling)
  Sender: FDA-Public Use
  Company Number: GB-BRISTOL-MYERS SQUIBB COMPANY-18786889

PATIENT
  Age: 77 Year
  Sex: Male
  Weight: 76 kg

DRUGS (8)
  1. METFORMIN HCL [Suspect]
  2. ASPIRIN [Concomitant]
     Dates: start: 20121210, end: 20130304
  3. BENDROFLUMETHIAZIDE [Concomitant]
     Dates: start: 20121210, end: 20130304
  4. DILZEM [Concomitant]
     Dates: start: 20121210, end: 20130304
  5. ENALAPRIL [Concomitant]
     Dates: start: 20121204, end: 20130304
  6. OMEPRAZOLE [Concomitant]
     Dates: start: 20121210, end: 20130304
  7. QUININE [Concomitant]
     Dates: start: 20121210, end: 20130304
  8. SIMVASTATIN [Concomitant]
     Dates: start: 20121210, end: 20130304

REACTIONS (3)
  - Constipation [Unknown]
  - Vertigo [Recovered/Resolved]
  - Decreased appetite [Unknown]
